FAERS Safety Report 9957378 (Version 1)
Quarter: 2014Q1

REPORT INFORMATION
  Report Type: Report from Study
  Country: US (occurrence: US)
  Receive Date: 20140304
  Receipt Date: 20140304
  Transmission Date: 20141002
  Serious: No
  Sender: FDA-Public Use
  Company Number: US-ABBVIE-13P-163-1097050-00

PATIENT
  Age: 72 Year
  Sex: Female

DRUGS (5)
  1. HUMIRA [Suspect]
     Indication: CROHN^S DISEASE
     Dates: start: 20130129
  2. OMEPRAZOLE [Concomitant]
     Indication: GASTROOESOPHAGEAL REFLUX DISEASE
     Dosage: 40MG DAILY
  3. PREMARIN [Concomitant]
     Indication: HOT FLUSH
     Dosage: 0.3MG DAILY
  4. LEVOTHYROXINE [Concomitant]
     Indication: THYROID DISORDER
     Dosage: 100MCG DAILY
  5. BUDESONIDE [Concomitant]
     Indication: GASTROINTESTINAL INFLAMMATION
     Dosage: 3MG DAILY TAPERING DOSE

REACTIONS (1)
  - Injection site pain [Recovered/Resolved]
